FAERS Safety Report 15965760 (Version 13)
Quarter: 2020Q4

REPORT INFORMATION
  Report Type: Other
  Country: DE (occurrence: DE)
  Receive Date: 20190215
  Receipt Date: 20201215
  Transmission Date: 20210113
  Serious: Yes (Hospitalization, Other)
  Sender: FDA-Public Use
  Company Number: DE-ROCHE-2232208

PATIENT
  Age: 56 Year
  Sex: Female
  Weight: 53 kg

DRUGS (4)
  1. OCREVUS [Suspect]
     Active Substance: OCRELIZUMAB
     Indication: PRIMARY PROGRESSIVE MULTIPLE SCLEROSIS
     Route: 042
     Dates: start: 20181204
  2. OCREVUS [Suspect]
     Active Substance: OCRELIZUMAB
     Route: 042
     Dates: start: 20190712
  3. OCREVUS [Suspect]
     Active Substance: OCRELIZUMAB
     Route: 042
     Dates: start: 20200922
  4. SATIVEX [Concomitant]
     Active Substance: NABIXIMOLS

REACTIONS (17)
  - Decreased appetite [Recovered/Resolved]
  - Drug ineffective [Unknown]
  - Fungal skin infection [Recovered/Resolved]
  - Herpes zoster [Recovered/Resolved]
  - Headache [Recovered/Resolved]
  - Product storage error [Unknown]
  - Fatigue [Recovered/Resolved]
  - Joint swelling [Recovered/Resolved]
  - Diarrhoea [Recovering/Resolving]
  - B-lymphocyte count decreased [Recovered/Resolved]
  - Rash [Recovered/Resolved]
  - Neurogenic bladder [Recovered/Resolved]
  - Sensory disturbance [Recovered/Resolved]
  - Nausea [Recovered/Resolved]
  - Weight decreased [Recovered/Resolved]
  - Arthropod bite [Recovered/Resolved]
  - Dizziness [Recovered/Resolved]

NARRATIVE: CASE EVENT DATE: 20181204
